FAERS Safety Report 25973974 (Version 1)
Quarter: 2025Q4

REPORT INFORMATION
  Report Type: Spontaneous
  Country: US (occurrence: None)
  Receive Date: 20251028
  Receipt Date: 20251028
  Transmission Date: 20260117
  Serious: Yes (Death, Life-Threatening, Hospitalization)
  Sender: FDA-CTU
  Company Number: None

PATIENT
  Age: 85 Year
  Sex: Male

DRUGS (1)
  1. EMPAGLIFLOZIN [Suspect]
     Active Substance: EMPAGLIFLOZIN
     Indication: Cardiac failure
     Dosage: 12.5 MG EVERY DAY PO
     Route: 048
     Dates: start: 20240613, end: 20250802

REACTIONS (8)
  - Hypotension [None]
  - Acute kidney injury [None]
  - Escherichia bacteraemia [None]
  - Proteus test positive [None]
  - Therapy cessation [None]
  - Encephalopathy [None]
  - Respiratory failure [None]
  - Pneumonia aspiration [None]

NARRATIVE: CASE EVENT DATE: 20250803
